FAERS Safety Report 5038582-1 (Version None)
Quarter: 2006Q2

REPORT INFORMATION
  Report Type: 
  Country: None (occurrence: None)
  Receive Date: 20060629
  Receipt Date: 20060428
  Transmission Date: 20061013
  Serious: Yes (Hospitalization)
  Sender: FDA-Public Use
  Company Number: JP-BRISTOL-MYERS SQUIBB COMPANY-13376793

PATIENT
  Age: 66 Year
  Sex: Male

DRUGS (7)
  1. MAXIPIME [Suspect]
     Indication: ANTIBIOTIC PROPHYLAXIS
     Dosage: DISCONTINUED ON 12-APR-2006 AND RESTARTED ON 24-APR-2006
     Route: 041
     Dates: start: 20060411, end: 20060424
  2. SWORD [Suspect]
     Indication: ANTIBIOTIC PROPHYLAXIS
     Route: 048
     Dates: start: 20060412, end: 20060414
  3. NORVASC [Concomitant]
     Route: 048
  4. HARNAL [Concomitant]
     Route: 048
  5. THEO-DUR [Concomitant]
     Route: 048
  6. MEPTIN [Concomitant]
     Route: 048
  7. RIZE [Concomitant]
     Route: 048

REACTIONS (3)
  - DRUG ERUPTION [None]
  - ERYTHEMA MULTIFORME [None]
  - HYPERSENSITIVITY [None]
